FAERS Safety Report 21872792 (Version 1)
Quarter: 2023Q1

REPORT INFORMATION
  Report Type: Spontaneous
  Country: IT (occurrence: IT)
  Receive Date: 20230117
  Receipt Date: 20230117
  Transmission Date: 20230417
  Serious: Yes (Hospitalization, Other)
  Sender: FDA-Public Use
  Company Number: None

PATIENT

DRUGS (5)
  1. NUCYNTA [Suspect]
     Active Substance: TAPENTADOL HYDROCHLORIDE
     Indication: Sciatica
     Dosage: 1 DOSAGE FORM, 4/DAY
     Route: 048
     Dates: start: 20221022, end: 20221101
  2. IBUPROFEN [Suspect]
     Active Substance: IBUPROFEN
     Indication: Sciatica
     Dosage: UNK, UNKNOWN
     Route: 048
     Dates: start: 20221022, end: 20221101
  3. DEFLAZACORT [Concomitant]
     Active Substance: DEFLAZACORT
     Indication: Sciatica
     Dosage: UNK, UNKNOWN
     Route: 065
     Dates: start: 20221021
  4. DEFLAZACORT [Concomitant]
     Active Substance: DEFLAZACORT
     Dosage: UNK, UNKNOWN
     Route: 065
  5. DEFLAZACORT [Concomitant]
     Active Substance: DEFLAZACORT
     Dosage: UNK, UNKNOWN
     Route: 065
     Dates: end: 20221101

REACTIONS (1)
  - Drug reaction with eosinophilia and systemic symptoms [Recovered/Resolved]

NARRATIVE: CASE EVENT DATE: 20221101
